FAERS Safety Report 11940927 (Version 1)
Quarter: 2016Q1

REPORT INFORMATION
  Report Type: Report from Study
  Country: IT (occurrence: IT)
  Receive Date: 20160122
  Receipt Date: 20160122
  Transmission Date: 20160526
  Serious: Yes (Death, Other)
  Sender: FDA-Public Use
  Company Number: IT-ABBVIE-16P-083-1542357-00

PATIENT
  Age: 84 Year
  Sex: Female
  Weight: 46 kg

DRUGS (1)
  1. DUODOPA [Suspect]
     Active Substance: CARBIDOPA\LEVODOPA
     Indication: PARKINSON^S DISEASE
     Dosage: MD 9.8 (+3)?CR 3.7?ED 4.2
     Route: 050
     Dates: start: 20090928, end: 20151204

REACTIONS (2)
  - General physical health deterioration [Fatal]
  - Cerebrovascular accident [Recovered/Resolved with Sequelae]

NARRATIVE: CASE EVENT DATE: 201508
